FAERS Safety Report 15275131 (Version 2)
Quarter: 2018Q4

REPORT INFORMATION
  Report Type: Spontaneous
  Country: US (occurrence: US)
  Receive Date: 20180814
  Receipt Date: 20181105
  Transmission Date: 20190204
  Serious: No
  Sender: FDA-Public Use
  Company Number: US-PFIZER INC-2017499066

PATIENT
  Age: 14 Year
  Sex: Male

DRUGS (1)
  1. GENOTROPIN [Suspect]
     Active Substance: SOMATROPIN
     Indication: GROWTH RETARDATION
     Dosage: 4 MG, 1X/DAY (7 DAYS A WEEK)
     Dates: start: 20141122

REACTIONS (8)
  - High density lipoprotein decreased [Unknown]
  - Blood insulin increased [Unknown]
  - Alanine aminotransferase increased [Unknown]
  - Device issue [Unknown]
  - Aspartate aminotransferase increased [Unknown]
  - Thyroxine increased [Unknown]
  - Product dose omission [Unknown]
  - Blood triglycerides increased [Unknown]

NARRATIVE: CASE EVENT DATE: 201711
